FAERS Safety Report 7674600-X (Version None)
Quarter: 2011Q3

REPORT INFORMATION
  Report Type: 
  Country: None (occurrence: None)
  Receive Date: 20110810
  Receipt Date: 20110805
  Transmission Date: 20111222
  Serious: Yes (Death, Hospitalization)
  Sender: FDA-Public Use
  Company Number: PHHY2011TW66248

PATIENT
  Sex: Female
  Weight: 64.9 kg

DRUGS (1)
  1. ZOLEDRONIC [Suspect]
     Dosage: 4 MG
     Route: 042
     Dates: start: 20100108, end: 20110727

REACTIONS (15)
  - OEDEMA PERIPHERAL [None]
  - CHROMATURIA [None]
  - HAEMATURIA [None]
  - METASTASES TO LIVER [None]
  - DECREASED APPETITE [None]
  - DYSPNOEA [None]
  - PLEURAL EFFUSION [None]
  - HYPOKALAEMIA [None]
  - HYPERBILIRUBINAEMIA [None]
  - ABDOMINAL PAIN UPPER [None]
  - HEPATIC FAILURE [None]
  - PULMONARY OEDEMA [None]
  - LUNG INFILTRATION [None]
  - RESPIRATORY FAILURE [None]
  - SHOCK [None]
